FAERS Safety Report 5009891-7 (Version None)
Quarter: 2006Q2

REPORT INFORMATION
  Report Type: 
  Country: None (occurrence: None)
  Receive Date: 20060522
  Receipt Date: 20060512
  Transmission Date: 20061013
  Serious: Yes (Other)
  Sender: FDA-Public Use
  Company Number: GXKR2006BR02722

PATIENT
  Age: 53 Year
  Sex: Male
  Weight: 61 kg

DRUGS (4)
  1. ALPRAZOLAM [Suspect]
     Indication: ANXIETY
     Dosage: 0.5 TID ORAL
     Route: 048
  2. OMEPRAZOLE [Concomitant]
  3. ATENOLOL [Concomitant]
  4. PAROXETINE [Concomitant]

REACTIONS (13)
  - BLOOD PRESSURE DECREASED [None]
  - CONFUSIONAL STATE [None]
  - CONSTIPATION [None]
  - DIZZINESS [None]
  - DRY MOUTH [None]
  - FEELING HOT [None]
  - GASTRITIS [None]
  - HYPERCHLORHYDRIA [None]
  - NERVOUSNESS [None]
  - PARAESTHESIA [None]
  - VISION BLURRED [None]
  - VISUAL DISTURBANCE [None]
  - WEIGHT DECREASED [None]
